FAERS Safety Report 23526368 (Version 1)
Quarter: 2024Q1

REPORT INFORMATION
  Report Type: Spontaneous
  Country: US (occurrence: US)
  Receive Date: 20240215
  Receipt Date: 20240215
  Transmission Date: 20240409
  Serious: No
  Sender: FDA-Public Use
  Company Number: US-ALXN-202401USA000372US

PATIENT
  Sex: Female
  Weight: 24.5 kg

DRUGS (3)
  1. ULTOMIRIS [Suspect]
     Active Substance: RAVULIZUMAB-CWVZ
     Indication: Cardiovascular event prophylaxis
     Dosage: UNK
     Route: 042
     Dates: start: 20240116
  2. ULTOMIRIS [Suspect]
     Active Substance: RAVULIZUMAB-CWVZ
     Indication: Off label use
  3. VITAMINS [Concomitant]
     Active Substance: VITAMINS
     Indication: Cardiovascular event prophylaxis
     Dosage: UNK
     Route: 065

REACTIONS (2)
  - Off label use [Unknown]
  - Nephropathy [Unknown]

NARRATIVE: CASE EVENT DATE: 20240116
